FAERS Safety Report 4296478-7 (Version None)
Quarter: 2004Q1

REPORT INFORMATION
  Report Type: 
  Country: None (occurrence: None)
  Receive Date: 20040217
  Receipt Date: 20040204
  Transmission Date: 20041129
  Serious: Yes (Other)
  Sender: FDA-Public Use
  Company Number: PHHO2004JP01971

PATIENT
  Age: 58 Year
  Sex: Female

DRUGS (3)
  1. GLEEVEC [Suspect]
     Indication: GASTROINTESTINAL STROMAL TUMOUR
     Dosage: 300 MG, QD
     Route: 048
     Dates: start: 20031106, end: 20031222
  2. GLEEVEC [Suspect]
     Dosage: UNK, NO TREATMENT
     Dates: start: 20031223, end: 20040109
  3. GLEEVEC [Suspect]
     Dosage: 300 MG, QD
     Route: 048
     Dates: start: 20040110, end: 20040127

REACTIONS (2)
  - HYPERAMMONAEMIA [None]
  - MALAISE [None]
